FAERS Safety Report 10764133 (Version 3)
Quarter: 2019Q1

REPORT INFORMATION
  Report Type: Spontaneous
  Country: US (occurrence: US)
  Receive Date: 20150204
  Receipt Date: 20190126
  Transmission Date: 20190417
  Serious: No
  Sender: FDA-Public Use
  Company Number: US-ACORDA-ACO_32415_2012

PATIENT
  Sex: Female

DRUGS (3)
  1. ENALAPRIL [Concomitant]
     Active Substance: ENALAPRIL
     Indication: PRODUCT USED FOR UNKNOWN INDICATION
     Dosage: 20 MG, QD
     Route: 065
  2. AMPYRA [Suspect]
     Active Substance: DALFAMPRIDINE
     Indication: PRODUCT USED FOR UNKNOWN INDICATION
     Dosage: 10 MG, Q 12 HRS
     Route: 065
     Dates: start: 20120622
  3. AMPYRA [Suspect]
     Active Substance: DALFAMPRIDINE
     Dosage: 10 MG, QD
     Route: 065

REACTIONS (20)
  - Balance disorder [Unknown]
  - Back pain [Unknown]
  - Nausea [Unknown]
  - Dysuria [Unknown]
  - Pain in extremity [Unknown]
  - Urinary tract infection [Unknown]
  - Hypoaesthesia [Not Recovered/Not Resolved]
  - Chest discomfort [Unknown]
  - Asthenia [Not Recovered/Not Resolved]
  - Incorrect dose administered [Unknown]
  - Fatigue [Unknown]
  - Memory impairment [Unknown]
  - Feeling abnormal [Unknown]
  - Migraine [Unknown]
  - Product dose omission [Unknown]
  - Blood pressure increased [Unknown]
  - Dizziness [Unknown]
  - Muscular weakness [Unknown]
  - Urinary incontinence [Unknown]
  - Headache [Unknown]

NARRATIVE: CASE EVENT DATE: 2012
